FAERS Safety Report 6403071-6 (Version None)
Quarter: 2009Q4

REPORT INFORMATION
  Report Type: 
  Country: None (occurrence: None)
  Receive Date: 20091016
  Receipt Date: 20090915
  Transmission Date: 20100525
  Serious: No
  Sender: FDA-Public Use
  Company Number: US-BAYER-200932991NA

PATIENT
  Age: 65 Year
  Sex: Male

DRUGS (5)
  1. AVELOX [Suspect]
     Indication: SINUSITIS
  2. AMBIEN [Concomitant]
  3. FEXOFENADINE [Concomitant]
  4. CYMBALTA [Concomitant]
  5. ZOCOR [Concomitant]

REACTIONS (1)
  - PALPITATIONS [None]
